FAERS Safety Report 15144466 (Version 1)
Quarter: 2018Q3

REPORT INFORMATION
  Report Type: Spontaneous
  Country: US (occurrence: US)
  Receive Date: 20180713
  Receipt Date: 20180713
  Transmission Date: 20181010
  Serious: No
  Sender: FDA-Public Use
  Company Number: US-NOVOPROD-604484

PATIENT
  Age: 28 Year
  Sex: Male

DRUGS (3)
  1. FIASP [Suspect]
     Active Substance: INSULIN ASPART
     Indication: TYPE 1 DIABETES MELLITUS
     Dosage: 15 U, TID ALL 3 MEALS
     Route: 058
     Dates: start: 20180314
  2. TRESIBA [Concomitant]
     Active Substance: INSULIN DEGLUDEC
     Indication: TYPE 1 DIABETES MELLITUS
     Dosage: 20 UNITS PER DAY
     Route: 058
     Dates: start: 201609
  3. FIASP [Suspect]
     Active Substance: INSULIN ASPART
     Dosage: FOUR CORRECTIONS DOSES
     Route: 058
     Dates: start: 20180603, end: 201806

REACTIONS (2)
  - Blood glucose increased [Recovered/Resolved]
  - Product quality issue [Recovered/Resolved]

NARRATIVE: CASE EVENT DATE: 20180603
